FAERS Safety Report 7724905-9 (Version None)
Quarter: 2011Q3

REPORT INFORMATION
  Report Type: 
  Country: None (occurrence: None)
  Receive Date: 20110901
  Receipt Date: 20110829
  Transmission Date: 20111222
  Serious: Yes (Other)
  Sender: FDA-Public Use
  Company Number: US-ABBOTT-11P-163-0850045-00

PATIENT
  Sex: Male
  Weight: 65.83 kg

DRUGS (2)
  1. HUMIRA [Suspect]
     Indication: CROHN'S DISEASE
     Route: 058
     Dates: start: 20110101, end: 20110501
  2. HUMIRA [Suspect]
     Route: 058
     Dates: start: 20110819

REACTIONS (3)
  - GASTROINTESTINAL STOMA COMPLICATION [None]
  - HERNIA [None]
  - ABDOMINAL ADHESIONS [None]
